FAERS Safety Report 6613599-1 (Version None)
Quarter: 2010Q1

REPORT INFORMATION
  Report Type: 
  Country: None (occurrence: None)
  Receive Date: 20100304
  Receipt Date: 20100219
  Transmission Date: 20100710
  Serious: Yes (Hospitalization)
  Sender: FDA-Public Use
  Company Number: JP-ROCHE-682202

PATIENT
  Sex: Female
  Weight: 40.4 kg

DRUGS (12)
  1. XELODA [Suspect]
     Indication: BREAST CANCER METASTATIC
     Dosage: DRUG: XELODA 300
     Route: 048
     Dates: start: 20070613, end: 20080530
  2. XELODA [Suspect]
     Dosage: DOSE INCREASED
     Route: 048
     Dates: start: 20090624
  3. XELODA [Suspect]
     Route: 048
     Dates: start: 20090819
  4. TYKERB [Suspect]
     Indication: DRUG USE FOR UNKNOWN INDICATION
     Dosage: DRUG: LAPATINIB TOSILATE HYDRATE
     Route: 048
  5. TYKERB [Suspect]
     Route: 048
  6. HERCEPTIN [Concomitant]
     Route: 041
     Dates: start: 20070613, end: 20080530
  7. HERCEPTIN [Concomitant]
     Route: 041
     Dates: start: 20080617, end: 20081222
  8. HERCEPTIN [Concomitant]
     Route: 041
     Dates: start: 20090113, end: 20090310
  9. NAVELBINE [Concomitant]
     Dosage: ROUTE: INTRAVENOUS (NOT OTHERWISE SPECIFIED)
     Route: 042
     Dates: start: 20080617, end: 20081222
  10. MITOMYCIN [Concomitant]
     Dosage: ROUTE: INTRAVENOUS (NOT OTHERWISE SPECIFIED)
     Route: 042
     Dates: start: 20090113, end: 20090310
  11. METHOTREXATE [Concomitant]
     Dosage: ROUTE: INTRAVENOUS (NOT OTHERWISE SPECIFIED)
     Route: 042
     Dates: start: 20090113, end: 20090310
  12. PYDOXAL [Concomitant]
     Route: 048
     Dates: start: 20090623

REACTIONS (2)
  - DIARRHOEA [None]
  - PYREXIA [None]
